FAERS Safety Report 8798922 (Version 1)
Quarter: 2012Q4

REPORT INFORMATION
  Report Type: 
  Country: GB (occurrence: GB)
  Receive Date: 20120920
  Receipt Date: 20120920
  Transmission Date: 20130627
  Serious: Yes (Hospitalization)
  Sender: FDA-Public Use
  Company Number: CHPA2012GB019881

PATIENT
  Age: 55 Year
  Sex: Female

DRUGS (3)
  1. SCOPODERM [Suspect]
     Indication: SALIVARY HYPERSECRETION
     Dosage: 1 mg, Q72H
     Route: 062
     Dates: start: 20120829, end: 20120831
  2. ERYTHROMYCIN [Concomitant]
     Dosage: Unk, Unk
  3. FLUCLOXACILLIN [Concomitant]
     Dosage: Unk, Unk

REACTIONS (2)
  - Angle closure glaucoma [Recovered/Resolved]
  - Off label use [Unknown]
